FAERS Safety Report 16755292 (Version 2)
Quarter: 2019Q3

REPORT INFORMATION
  Report Type: Spontaneous
  Country: BE (occurrence: BE)
  Receive Date: 20190829
  Receipt Date: 20190919
  Transmission Date: 20191005
  Serious: Yes (Other)
  Sender: FDA-Public Use
  Company Number: BE-JNJFOC-20190823958

PATIENT
  Sex: Female
  Weight: 53 kg

DRUGS (1)
  1. STELARA [Suspect]
     Active Substance: USTEKINUMAB
     Indication: CROHN^S DISEASE
     Route: 058

REACTIONS (4)
  - Abscess [Recovered/Resolved]
  - Drug ineffective [Unknown]
  - Crohn^s disease [Recovering/Resolving]
  - Arthropathy [Not Recovered/Not Resolved]
